FAERS Safety Report 9377142 (Version 1)
Quarter: 2013Q3

REPORT INFORMATION
  Report Type: Spontaneous
  Country: US (occurrence: US)
  Receive Date: 20130701
  Receipt Date: 20130701
  Transmission Date: 20140515
  Serious: No
  Sender: FDA-Public Use
  Company Number: US-BAYER-2013-079880

PATIENT
  Age: 89 Year
  Sex: Male
  Weight: 77.1 kg

DRUGS (5)
  1. BAYER ADVANCED ASPIRIN EXTRA STRENGTH [Suspect]
     Indication: BACK PAIN
     Dosage: 1 DF, PRN
     Route: 048
     Dates: start: 2012, end: 20130621
  2. BAYER GENUINE ASPIRIN ORIGINAL STRENGTH [Suspect]
     Indication: ANALGESIC THERAPY
     Dosage: 1 DF, PRN
     Route: 048
     Dates: start: 1947
  3. ALEVE CAPLET [Suspect]
     Indication: PAIN
  4. HYTRIN [Concomitant]
  5. LIVALO [Concomitant]

REACTIONS (4)
  - Foreign body [Recovered/Resolved]
  - Throat irritation [Recovered/Resolved]
  - Urinary tract pain [Recovered/Resolved]
  - Drug ineffective [None]
